FAERS Safety Report 16263909 (Version 1)
Quarter: 2019Q2

REPORT INFORMATION
  Report Type: Spontaneous
  Country: US (occurrence: US)
  Receive Date: 20190502
  Receipt Date: 20190502
  Transmission Date: 20190711
  Serious: No
  Sender: FDA-Public Use
  Company Number: US-BION-007864

PATIENT
  Age: 58 Year
  Sex: Female
  Weight: 83.91 kg

DRUGS (1)
  1. DOFETILIDE BIONPHARMA [Suspect]
     Active Substance: DOFETILIDE
     Indication: CARDIAC FIBRILLATION
     Route: 048

REACTIONS (6)
  - Malaise [Unknown]
  - Weight increased [Unknown]
  - Fluid retention [Unknown]
  - Nasopharyngitis [Unknown]
  - Peripheral swelling [Unknown]
  - Product substitution issue [Unknown]

NARRATIVE: CASE EVENT DATE: 20181020
